FAERS Safety Report 5187427-8 (Version None)
Quarter: 2006Q4

REPORT INFORMATION
  Report Type: 
  Country: None (occurrence: None)
  Receive Date: 20061220
  Receipt Date: 20060323
  Transmission Date: 20070319
  Serious: No
  Sender: FDA-Public Use
  Company Number: US-AMGEN-US173598

PATIENT
  Sex: Female

DRUGS (4)
  1. ENBREL [Suspect]
     Indication: PSORIATIC ARTHROPATHY
     Route: 065
  2. MECLOMEN [Concomitant]
     Route: 065
  3. EFFEXOR [Concomitant]
     Route: 065
     Dates: start: 20040101
  4. DEXTROAMPHETAMINE SULFATE [Concomitant]
     Route: 065

REACTIONS (1)
  - RASH PAPULAR [None]
